FAERS Safety Report 24180750 (Version 2)
Quarter: 2024Q3

REPORT INFORMATION
  Report Type: Spontaneous
  Country: US (occurrence: US)
  Receive Date: 20240806
  Receipt Date: 20240819
  Transmission Date: 20241016
  Serious: Yes (Other)
  Sender: APELLIS PHARMACEUTICALS
  Company Number: US-APELLIS-2024-APL-0000114

PATIENT

DRUGS (2)
  1. SYFOVRE [Suspect]
     Active Substance: PEGCETACOPLAN
     Indication: Dry age-related macular degeneration
     Dosage: 15 MG 1 CC INTRAVITREAL INJECTION OS
     Route: 031
     Dates: start: 20240426
  2. SYFOVRE [Suspect]
     Active Substance: PEGCETACOPLAN
     Dosage: 8 MG GIVEN INTRAOCULAR INJECTION OS - NO ISSUES
     Route: 031
     Dates: start: 20240701

REACTIONS (1)
  - Blindness transient [Recovered/Resolved]

NARRATIVE: CASE EVENT DATE: 20240426
